FAERS Safety Report 6389926-X (Version None)
Quarter: 2009Q4

REPORT INFORMATION
  Report Type: 
  Country: None (occurrence: None)
  Receive Date: 20091006
  Receipt Date: 20090421
  Transmission Date: 20100525
  Serious: No
  Sender: FDA-Public Use
  Company Number: US-BRISTOL-MYERS SQUIBB COMPANY-14592786

PATIENT
  Age: 47 Year
  Sex: Female

DRUGS (1)
  1. AVAPRO [Suspect]
     Indication: HYPERTENSION
     Dosage: REDUCED TO 1/2 TABLET QD AND FURTHER REDUCED TO 1/4 TABS QD.
     Route: 048
     Dates: start: 20080301

REACTIONS (1)
  - CHEST DISCOMFORT [None]
